FAERS Safety Report 7301213-1 (Version None)
Quarter: 2011Q1

REPORT INFORMATION
  Report Type: 
  Country: None (occurrence: None)
  Receive Date: 20110218
  Receipt Date: 20110209
  Transmission Date: 20110831
  Serious: Yes (Other)
  Sender: FDA-Public Use
  Company Number: JP-ELI_LILLY_AND_COMPANY-JP201101000302

PATIENT
  Age: 82 Year
  Sex: Female

DRUGS (10)
  1. NORVASC [Concomitant]
     Indication: DIABETES MELLITUS
     Route: 048
  2. FORTEO [Suspect]
     Dosage: UNK, UNK
     Dates: start: 20101129
  3. TAGAMET [Concomitant]
     Indication: GASTRITIS
     Route: 048
  4. BASEN [Concomitant]
     Indication: DIABETES MELLITUS
     Route: 048
  5. BONALON [Concomitant]
     Indication: OSTEOPOROSIS
     Dosage: 5 MG, DAILY (1/D)
     Route: 048
  6. BLOPRESS [Concomitant]
     Indication: HYPERTENSION
     Route: 048
  7. MAGMITT [Concomitant]
     Indication: GASTRITIS
     Route: 048
  8. ASPIRIN [Concomitant]
     Indication: CEREBRAL INFARCTION
     Route: 048
  9. CRESTOR [Concomitant]
     Indication: HYPERLIPIDAEMIA
     Route: 048
  10. AMARYL [Concomitant]
     Indication: DIABETES MELLITUS
     Route: 048

REACTIONS (1)
  - HYPOKALAEMIA [None]
